FAERS Safety Report 9298867 (Version 1)
Quarter: 2013Q2

REPORT INFORMATION
  Report Type: Spontaneous
  Country: US (occurrence: US)
  Receive Date: 20130520
  Receipt Date: 20130520
  Transmission Date: 20140414
  Serious: Yes (Other)
  Sender: FDA-Public Use
  Company Number: US-SANOFI-AVENTIS-2012SA029831

PATIENT
  Sex: Female

DRUGS (6)
  1. LANTUS [Suspect]
     Dosage: 15 UNITS IN AM AND 6 UNITS IN PM
     Route: 058
  2. SOLOSTAR [Suspect]
  3. APIDRA [Suspect]
     Dosage: DOSE:10 UNIT(S)
     Route: 058
  4. APIDRA [Suspect]
     Dosage: DOSE:8 UNIT(S)
     Route: 058
  5. SOLOSTAR [Suspect]
  6. LEVOTHYROXINE [Concomitant]
     Indication: THYROID DISORDER

REACTIONS (6)
  - Hypoglycaemic unconsciousness [Unknown]
  - Blood glucose decreased [Unknown]
  - Dizziness [Unknown]
  - Asthenia [Unknown]
  - Hyperhidrosis [Unknown]
  - Blood glucose increased [Unknown]
